FAERS Safety Report 6335833-8 (Version None)
Quarter: 2009Q3

REPORT INFORMATION
  Report Type: 
  Country: None (occurrence: None)
  Receive Date: 20090828
  Receipt Date: 20090814
  Transmission Date: 20100115
  Serious: Yes (Other)
  Sender: FDA-Public Use
  Company Number: DSM-2009-01181

PATIENT
  Age: 56 Year
  Sex: Female

DRUGS (1)
  1. OMESAR (OLMESARTAN MEDOXOMIL) (20 MILLIGRAM) (OLMESARTAN MEDOXOMIL) [Suspect]
     Indication: DRUG USE FOR UNKNOWN INDICATION
     Dosage: ORAL
     Route: 048
     Dates: start: 20080101

REACTIONS (2)
  - INCREASED TENDENCY TO BRUISE [None]
  - THROMBOCYTOPENIA [None]
